FAERS Safety Report 8349216-2 (Version None)
Quarter: 2012Q2

REPORT INFORMATION
  Report Type: 
  Country: None (occurrence: None)
  Receive Date: 20120510
  Receipt Date: 20120504
  Transmission Date: 20120825
  Serious: Yes (Other)
  Sender: FDA-Public Use
  Company Number: PHHY2012US038631

PATIENT
  Age: 5 Year
  Sex: Male

DRUGS (6)
  1. ARIPIPRAZOLE [Suspect]
     Dosage: 2.5 MG, UNK
  2. DEXTROAMPHETAMINE [Suspect]
  3. VALPROIC ACID [Concomitant]
  4. ARIPIPRAZOLE [Suspect]
     Dosage: 2.5 MG, UNK
  5. ARIPIPRAZOLE [Suspect]
     Dosage: 5 MG, UNK
  6. METHYLPHENIDATE [Suspect]

REACTIONS (5)
  - COORDINATION ABNORMAL [None]
  - ATAXIA [None]
  - GAIT DISTURBANCE [None]
  - MUSCULAR WEAKNESS [None]
  - CHOREOATHETOSIS [None]
